FAERS Safety Report 5798538-8 (Version None)
Quarter: 2008Q2

REPORT INFORMATION
  Report Type: 
  Country: None (occurrence: None)
  Receive Date: 20080630
  Receipt Date: 20080613
  Transmission Date: 20081010
  Serious: Yes (Hospitalization)
  Sender: FDA-Public Use
  Company Number: 230011M08DEU

PATIENT
  Age: 41 Year
  Sex: Male
  Weight: 65 kg

DRUGS (2)
  1. REBIF [Suspect]
     Indication: MULTIPLE SCLEROSIS
     Dosage: 44 MCG, 3 IN 1 WEEKS, SUBCUTANEOUS
     Route: 058
     Dates: end: 20080401
  2. AMITRIPTYLINE /00002201/ [Concomitant]

REACTIONS (12)
  - ASTHENIA [None]
  - CHILLS [None]
  - FATIGUE [None]
  - INDURATION [None]
  - INFLUENZA LIKE ILLNESS [None]
  - INJECTION SITE ERYTHEMA [None]
  - INJECTION SITE SWELLING [None]
  - INTENTION TREMOR [None]
  - MOBILITY DECREASED [None]
  - PAIN [None]
  - PARAPARESIS [None]
  - PYREXIA [None]
